FAERS Safety Report 12535467 (Version 2)
Quarter: 2017Q3

REPORT INFORMATION
  Report Type: Report from Study
  Country: DE (occurrence: DE)
  Receive Date: 20160707
  Receipt Date: 20170925
  Transmission Date: 20171127
  Serious: Yes (Hospitalization)
  Sender: FDA-Public Use
  Company Number: PHHY2016DE091621

PATIENT
  Sex: Female

DRUGS (9)
  1. PANTOPRAZOL [Concomitant]
     Active Substance: PANTOPRAZOLE SODIUM
     Indication: NAUSEA
     Dosage: 20 MG, QD
     Route: 065
     Dates: start: 20140918
  2. IBEROGAST [Concomitant]
     Active Substance: HERBALS
     Indication: NAUSEA
     Dosage: 20 DRP, PRN
     Route: 065
     Dates: start: 20140918
  3. HYLO [Concomitant]
     Indication: DRY EYE
     Dosage: UNK
     Route: 065
     Dates: start: 20150508, end: 20150831
  4. TOXI-LOGES [Concomitant]
     Indication: COUGH
     Dosage: UNK UNK, QD
     Route: 065
     Dates: start: 20160428
  5. L-THYROXINE/LEVOTHYROXINE [Concomitant]
     Dosage: 88 UG, QD
     Route: 065
     Dates: start: 20140918
  6. L-THYROXINE/LEVOTHYROXINE [Concomitant]
     Indication: HYPOTHYROIDISM
     Dosage: 100 UG, QD
     Route: 065
     Dates: end: 20140917
  7. NOVALGIN [Concomitant]
     Active Substance: METAMIZOLE SODIUM
     Indication: ARTHRALGIA
     Dosage: UNK UNK, PRN
     Route: 065
     Dates: start: 20150508
  8. TASIGNA [Suspect]
     Active Substance: NILOTINIB
     Indication: CHRONIC MYELOID LEUKAEMIA
     Dosage: 600 MG, QD
     Route: 065
     Dates: start: 20140725
  9. MAGNESIUM [Concomitant]
     Active Substance: MAGNESIUM
     Indication: ARTHRALGIA
     Route: 065
     Dates: start: 20150208

REACTIONS (2)
  - Bronchitis [Recovered/Resolved]
  - Cough [Unknown]

NARRATIVE: CASE EVENT DATE: 20160418
